FAERS Safety Report 11459969 (Version 2)
Quarter: 2015Q3

REPORT INFORMATION
  Report Type: Spontaneous
  Country: GB (occurrence: GB)
  Receive Date: 20150904
  Receipt Date: 20150910
  Transmission Date: 20151125
  Serious: Yes (Death)
  Sender: FDA-Public Use
  Company Number: GB-PFIZER INC-2015283542

PATIENT
  Sex: Male
  Weight: 3 kg

DRUGS (4)
  1. MYSOLINE [Suspect]
     Active Substance: PRIMIDONE
     Dosage: UNK (INCREASED DOSE)
     Route: 064
  2. EPANUTIN [Suspect]
     Active Substance: PHENYTOIN SODIUM
     Indication: EPILEPSY
     Dosage: 100 MG, 3X/DAY
     Route: 064
  3. ZARONTIN [Suspect]
     Active Substance: ETHOSUXIMIDE
     Indication: EPILEPSY
     Dosage: 500 MG, 3X/DAY
     Route: 064
  4. MYSOLINE [Suspect]
     Active Substance: PRIMIDONE
     Indication: EPILEPSY
     Dosage: 250 MG, 3X/DAY
     Route: 064

REACTIONS (2)
  - Haemorrhage [Fatal]
  - Maternal exposure during pregnancy [Fatal]
